FAERS Safety Report 25149288 (Version 6)
Quarter: 2025Q2

REPORT INFORMATION
  Report Type: Report from Study
  Country: US (occurrence: US)
  Receive Date: 20250402
  Receipt Date: 20250528
  Transmission Date: 20250716
  Serious: Yes (Hospitalization, Other)
  Sender: AUROBINDO
  Company Number: US-AUROBINDO-AUR-APL-2025-017162

PATIENT
  Age: 65 Year
  Sex: Female
  Weight: 56 kg

DRUGS (60)
  1. PREDNISONE [Suspect]
     Active Substance: PREDNISONE
     Indication: Peripheral T-cell lymphoma unspecified stage III
     Dosage: 100 MILLIGRAM, ONCE A DAY( (ON DAY 1 OF 21 DAYS CYLE))
     Route: 048
     Dates: start: 20241104
  2. PREDNISONE [Suspect]
     Active Substance: PREDNISONE
     Dosage: 100 MILLIGRAM, ONCE A DAY( (ON DAY 1 OF 21 DAYS CYLE))
     Route: 048
     Dates: start: 20241105
  3. PREDNISONE [Suspect]
     Active Substance: PREDNISONE
     Dosage: 100 MILLIGRAM, ONCE A DAY( (ON DAY 1 OF 21 DAYS CYLE))
     Route: 048
     Dates: start: 20241106
  4. PREDNISONE [Suspect]
     Active Substance: PREDNISONE
     Dosage: 100 MILLIGRAM, ONCE A DAY( (ON DAY 1 OF 21 DAYS CYLE))
     Route: 048
     Dates: start: 20241107
  5. PREDNISONE [Suspect]
     Active Substance: PREDNISONE
     Dosage: 100 MILLIGRAM, ONCE A DAY( (ON DAY 1 OF 21 DAYS CYLE))
     Route: 048
     Dates: start: 20241108
  6. PREDNISONE [Suspect]
     Active Substance: PREDNISONE
     Dosage: 100 MILLIGRAM, ONCE A DAY( (ON DAY 1 OF 21 DAYS CYLE))
     Route: 048
     Dates: start: 20241125
  7. PREDNISONE [Suspect]
     Active Substance: PREDNISONE
     Dosage: 100 MILLIGRAM, ONCE A DAY( (ON DAY 1 OF 21 DAYS CYLE))
     Route: 048
     Dates: start: 20241216
  8. PREDNISONE [Suspect]
     Active Substance: PREDNISONE
     Dosage: 100 MILLIGRAM, ONCE A DAY( (ON DAY 1 OF 21 DAYS CYLE))
     Route: 048
     Dates: start: 20241126
  9. PREDNISONE [Suspect]
     Active Substance: PREDNISONE
     Dosage: 100 MILLIGRAM, ONCE A DAY( (ON DAY 1 OF 21 DAYS CYLE))
     Route: 048
     Dates: start: 20241127
  10. PREDNISONE [Suspect]
     Active Substance: PREDNISONE
     Dosage: 100 MILLIGRAM, ONCE A DAY( (ON DAY 1 OF 21 DAYS CYLE))
     Route: 048
     Dates: start: 20241128
  11. PREDNISONE [Suspect]
     Active Substance: PREDNISONE
     Dosage: 100 MILLIGRAM, ONCE A DAY( (ON DAY 1 OF 21 DAYS CYLE))
     Route: 048
     Dates: start: 20241129
  12. PREDNISONE [Suspect]
     Active Substance: PREDNISONE
     Dosage: 100 MILLIGRAM, ONCE A DAY( (ON DAY 1 OF 21 DAYS CYLE))
     Route: 048
     Dates: start: 20241217
  13. PREDNISONE [Suspect]
     Active Substance: PREDNISONE
     Dosage: 100 MILLIGRAM, ONCE A DAY( (ON DAY 1 OF 21 DAYS CYLE))
     Route: 048
     Dates: start: 20241218
  14. PREDNISONE [Suspect]
     Active Substance: PREDNISONE
     Dosage: 100 MILLIGRAM, ONCE A DAY( (ON DAY 1 OF 21 DAYS CYLE))
     Route: 048
     Dates: start: 20241219
  15. PREDNISONE [Suspect]
     Active Substance: PREDNISONE
     Dosage: 100 MILLIGRAM, ONCE A DAY( (ON DAY 1 OF 21 DAYS CYLE))
     Route: 048
     Dates: start: 20241220
  16. PREDNISONE [Suspect]
     Active Substance: PREDNISONE
     Dosage: 100 MILLIGRAM, ONCE A DAY( (ON DAY 1 OF 21 DAYS CYLE))
     Route: 048
     Dates: start: 20250106
  17. PREDNISONE [Suspect]
     Active Substance: PREDNISONE
     Dosage: 100 MILLIGRAM, ONCE A DAY( (ON DAY 1 OF 21 DAYS CYLE))
     Route: 048
     Dates: start: 20250107
  18. PREDNISONE [Suspect]
     Active Substance: PREDNISONE
     Dosage: 100 MILLIGRAM, ONCE A DAY( (ON DAY 1 OF 21 DAYS CYLE))
     Route: 048
     Dates: start: 20250108
  19. PREDNISONE [Suspect]
     Active Substance: PREDNISONE
     Dosage: 100 MILLIGRAM, ONCE A DAY( (ON DAY 1 OF 21 DAYS CYLE))
     Route: 048
     Dates: start: 20250109
  20. PREDNISONE [Suspect]
     Active Substance: PREDNISONE
     Dosage: 100 MILLIGRAM, ONCE A DAY( (ON DAY 1 OF 21 DAYS CYLE))
     Route: 048
     Dates: start: 20250110
  21. PREDNISONE [Suspect]
     Active Substance: PREDNISONE
     Dosage: 100 MILLIGRAM, ONCE A DAY( (ON DAY 1 OF 21 DAYS CYLE))
     Route: 048
     Dates: start: 20250203
  22. PREDNISONE [Suspect]
     Active Substance: PREDNISONE
     Dosage: 100 MILLIGRAM, ONCE A DAY( (ON DAY 1 OF 21 DAYS CYLE))
     Route: 048
     Dates: start: 20250203
  23. PREDNISONE [Suspect]
     Active Substance: PREDNISONE
     Dosage: 100 MILLIGRAM, ONCE A DAY( (ON DAY 1 OF 21 DAYS CYLE))
     Route: 048
     Dates: start: 20250225
  24. CYCLOPHOSPHAMIDE [Suspect]
     Active Substance: CYCLOPHOSPHAMIDE
     Indication: Peripheral T-cell lymphoma unspecified stage III
     Route: 042
     Dates: start: 20241104, end: 20241104
  25. CYCLOPHOSPHAMIDE [Suspect]
     Active Substance: CYCLOPHOSPHAMIDE
     Route: 042
     Dates: start: 20241125, end: 20241125
  26. CYCLOPHOSPHAMIDE [Suspect]
     Active Substance: CYCLOPHOSPHAMIDE
     Route: 042
     Dates: start: 20241216, end: 20241216
  27. CYCLOPHOSPHAMIDE [Suspect]
     Active Substance: CYCLOPHOSPHAMIDE
     Route: 042
     Dates: start: 20250106, end: 20250106
  28. CYCLOPHOSPHAMIDE [Suspect]
     Active Substance: CYCLOPHOSPHAMIDE
     Route: 042
     Dates: start: 20250203, end: 20250203
  29. CYCLOPHOSPHAMIDE [Suspect]
     Active Substance: CYCLOPHOSPHAMIDE
     Route: 042
     Dates: start: 20250225, end: 20250225
  30. ONDANSETRON [Suspect]
     Active Substance: ONDANSETRON
     Indication: Premedication
     Route: 042
     Dates: start: 20241104, end: 20241125
  31. DOXORUBICIN [Suspect]
     Active Substance: DOXORUBICIN
     Indication: Peripheral T-cell lymphoma unspecified stage III
     Route: 042
     Dates: start: 20241104, end: 20241104
  32. DOXORUBICIN [Suspect]
     Active Substance: DOXORUBICIN
     Route: 042
     Dates: start: 20241125, end: 20241125
  33. DOXORUBICIN [Suspect]
     Active Substance: DOXORUBICIN
     Route: 042
     Dates: start: 20241216, end: 20241216
  34. DOXORUBICIN [Suspect]
     Active Substance: DOXORUBICIN
     Route: 042
     Dates: start: 20250106, end: 20250106
  35. DOXORUBICIN [Suspect]
     Active Substance: DOXORUBICIN
     Route: 042
     Dates: start: 20250203, end: 20250203
  36. DOXORUBICIN [Suspect]
     Active Substance: DOXORUBICIN
     Route: 042
     Dates: start: 20250225, end: 20250225
  37. ONCOVIN [Suspect]
     Active Substance: VINCRISTINE SULFATE
     Indication: Peripheral T-cell lymphoma unspecified stage III
     Route: 042
     Dates: start: 20241104, end: 20241104
  38. ONCOVIN [Suspect]
     Active Substance: VINCRISTINE SULFATE
     Route: 042
     Dates: start: 20241125, end: 20241125
  39. ONCOVIN [Suspect]
     Active Substance: VINCRISTINE SULFATE
     Route: 042
     Dates: start: 20241216, end: 20241216
  40. ONCOVIN [Suspect]
     Active Substance: VINCRISTINE SULFATE
     Route: 042
     Dates: start: 20250106, end: 20250106
  41. ONCOVIN [Suspect]
     Active Substance: VINCRISTINE SULFATE
     Route: 042
     Dates: start: 20250203, end: 20250203
  42. ONCOVIN [Suspect]
     Active Substance: VINCRISTINE SULFATE
     Route: 042
     Dates: start: 20250225, end: 20250225
  43. SYNTHROID [Concomitant]
     Active Substance: LEVOTHYROXINE SODIUM
     Indication: Product used for unknown indication
     Dosage: 0.1 MILLIGRAM, ONCE A DAY
     Route: 048
     Dates: start: 20250101
  44. TEGOPRAZAN [Concomitant]
     Active Substance: TEGOPRAZAN
     Indication: Gastritis prophylaxis
     Route: 048
     Dates: start: 20241104, end: 20250301
  45. PEGFILGRASTIM [Concomitant]
     Active Substance: PEGFILGRASTIM
     Indication: Neutropenia
     Route: 058
     Dates: start: 20241105, end: 20250226
  46. METOCLOPRAMIDE HYDROCHLORIDE [Concomitant]
     Active Substance: METOCLOPRAMIDE HYDROCHLORIDE
     Indication: Prophylaxis of nausea and vomiting
     Route: 048
     Dates: start: 20241204, end: 20250228
  47. Akynzeo [Concomitant]
     Indication: Vomiting
     Route: 048
     Dates: start: 20241216, end: 20250225
  48. Medilac-s [Concomitant]
     Indication: Product used for unknown indication
     Dosage: 125 MILLIGRAM, TWO TIMES A DAY
     Route: 048
     Dates: start: 20250226, end: 20250304
  49. TEGOPRAZAN [Concomitant]
     Active Substance: TEGOPRAZAN
     Indication: Gastrointestinal disorder prophylaxis
     Route: 048
     Dates: start: 20241104, end: 20250301
  50. SUPRAX [Concomitant]
     Active Substance: CEFIXIME
     Indication: Product used for unknown indication
     Dosage: 100 MILLIGRAM, TWO TIMES A DAY
     Route: 048
     Dates: start: 20241105, end: 20241109
  51. FOLIC ACID [Concomitant]
     Active Substance: FOLIC ACID
     Indication: Toxicity to various agents
     Route: 048
     Dates: start: 20241030, end: 20241104
  52. QUETIAPINE FUMARATE [Concomitant]
     Active Substance: QUETIAPINE FUMARATE
     Indication: Product used for unknown indication
     Route: 048
     Dates: start: 20241125, end: 20241221
  53. Hemonics [Concomitant]
     Indication: Toxicity to various agents
     Route: 030
     Dates: start: 20241030, end: 20241030
  54. ZOLPIDEM TARTRATE [Concomitant]
     Active Substance: ZOLPIDEM TARTRATE
     Indication: Product used for unknown indication
     Route: 048
     Dates: start: 20241124, end: 20241124
  55. ZOLPIDEM TARTRATE [Concomitant]
     Active Substance: ZOLPIDEM TARTRATE
     Route: 048
     Dates: start: 20241204, end: 20241213
  56. Moxicle [Concomitant]
     Indication: Infection
     Dosage: 625 MILLIGRAM, TWO TIMES A DAY
     Route: 048
     Dates: start: 20250324, end: 20250329
  57. MUCOMYST [Concomitant]
     Active Substance: ACETYLCYSTEINE
     Indication: Product used for unknown indication
     Dosage: 800 MILLIGRAM, FOUR TIMES/DAY
     Dates: start: 20241103, end: 20241105
  58. ONDANSETRON [Concomitant]
     Active Substance: ONDANSETRON
     Indication: Product used for unknown indication
     Route: 048
     Dates: start: 20241126, end: 20241127
  59. Polybutine [Concomitant]
     Indication: Product used for unknown indication
     Dosage: 300 MILLIGRAM, TWO TIMES A DAY
     Route: 048
     Dates: start: 20241226, end: 20250304
  60. OLIMEL [Concomitant]
     Active Substance: AMINO ACIDS\DEXTROSE\SOYBEAN OIL
     Indication: Nutritional supplementation
     Dates: start: 20250319, end: 20250323

REACTIONS (5)
  - Urinary tract infection [Recovered/Resolved]
  - Constipation [Recovered/Resolved]
  - Irritable bowel syndrome [Recovered/Resolved]
  - Nausea [Recovered/Resolved]
  - Diarrhoea [Recovered/Resolved]

NARRATIVE: CASE EVENT DATE: 20241126
